FAERS Safety Report 16591119 (Version 1)
Quarter: 2019Q3

REPORT INFORMATION
  Report Type: Spontaneous
  Country: US (occurrence: US)
  Receive Date: 20190718
  Receipt Date: 20190718
  Transmission Date: 20191004
  Serious: No
  Sender: FDA-Public Use
  Company Number: US-SWEDISH ORPHAN BIOVITRUM-2018US0177

PATIENT
  Sex: Female

DRUGS (8)
  1. METHOTREXATE. [Suspect]
     Active Substance: METHOTREXATE
  2. ENBREL [Suspect]
     Active Substance: ETANERCEPT
     Indication: RHEUMATOID ARTHRITIS
     Dates: start: 20050322, end: 20180123
  3. HUMIRA [Concomitant]
     Active Substance: ADALIMUMAB
     Dates: start: 20060425
  4. PLAQUENIL [Concomitant]
     Active Substance: HYDROXYCHLOROQUINE SULFATE
  5. RITUXAN [Concomitant]
     Active Substance: RITUXIMAB
  6. KINERET [Suspect]
     Active Substance: ANAKINRA
     Indication: RHEUMATOID ARTHRITIS
  7. REMICADE [Concomitant]
     Active Substance: INFLIXIMAB
  8. CIMZIA [Concomitant]
     Active Substance: CERTOLIZUMAB PEGOL

REACTIONS (1)
  - Drug ineffective [Unknown]
